FAERS Safety Report 4428334-5 (Version None)
Quarter: 2004Q3

REPORT INFORMATION
  Report Type: 
  Country: None (occurrence: None)
  Receive Date: 20040818
  Receipt Date: 20040806
  Transmission Date: 20050211
  Serious: Yes (Other)
  Sender: FDA-Public Use
  Company Number: US-JNJFOC-20040802800

PATIENT
  Sex: Male
  Weight: 61.24 kg

DRUGS (7)
  1. INFLIXIMAB [Suspect]
     Indication: RHEUMATOID ARTHRITIS
     Route: 042
  2. FLOMAX [Concomitant]
  3. PREDNISONE [Concomitant]
  4. TYLENOL [Concomitant]
  5. ASPIRIN [Concomitant]
  6. METHOTREXATE [Concomitant]
  7. VITAMIN SUPPLEMENT [Concomitant]

REACTIONS (1)
  - SQUAMOUS CELL CARCINOMA OF SKIN [None]
